FAERS Safety Report 7386574-X (Version None)
Quarter: 2011Q1

REPORT INFORMATION
  Report Type: 
  Country: None (occurrence: None)
  Receive Date: 20110329
  Receipt Date: 20110329
  Transmission Date: 20110831
  Serious: Yes (Other)
  Sender: FDA-Public Use
  Company Number: None

PATIENT
  Age: 20 Year
  Sex: Female
  Weight: 55.7924 kg

DRUGS (1)
  1. MIRENA [Suspect]
     Indication: CONTRACEPTION
     Dosage: 1 TIME EACH 5 YEARS ENDOCERVICAL
     Route: 005
     Dates: start: 20110216, end: 20110326

REACTIONS (9)
  - PYREXIA [None]
  - CHILLS [None]
  - BREAST TENDERNESS [None]
  - AMENORRHOEA [None]
  - DYSPAREUNIA [None]
  - MENTAL STATUS CHANGES [None]
  - MOOD ALTERED [None]
  - ABDOMINAL PAIN [None]
  - HEADACHE [None]
